FAERS Safety Report 5371213-X (Version None)
Quarter: 2007Q2

REPORT INFORMATION
  Report Type: 
  Country: None (occurrence: None)
  Receive Date: 20070614
  Receipt Date: 20070314
  Transmission Date: 20071010
  Serious: No
  Sender: FDA-Public Use
  Company Number: BDI-009239

PATIENT
  Age: 54 Year
  Sex: Male
  Weight: 72.73 kg

DRUGS (3)
  1. MULTIHANCE [Suspect]
     Indication: METASTASIS
     Dosage: 17 ML ONCE IV
     Route: 042
     Dates: start: 20070313, end: 20070313
  2. MULTIHANCE [Suspect]
     Indication: NUCLEAR MAGNETIC RESONANCE IMAGING
     Dosage: 17 ML ONCE IV
     Route: 042
     Dates: start: 20070313, end: 20070313
  3. CHEMOTHERAPEUTICS [Concomitant]

REACTIONS (1)
  - HYPERSENSITIVITY [None]
